FAERS Safety Report 12174569 (Version 2)
Quarter: 2016Q2

REPORT INFORMATION
  Report Type: Report from Study
  Country: DE (occurrence: DE)
  Receive Date: 20160312
  Receipt Date: 20160414
  Transmission Date: 20160815
  Serious: Yes (Life-Threatening, Hospitalization, Other)
  Sender: FDA-Public Use
  Company Number: DE-ABBVIE-16K-062-1580154-00

PATIENT
  Age: 49 Year
  Sex: Female
  Weight: 62 kg

DRUGS (5)
  1. TILIDIN [Concomitant]
     Active Substance: NALOXONE HYDROCHLORIDE\TILIDINE HYDROCHLORIDE
     Indication: PRODUCT USED FOR UNKNOWN INDICATION
  2. IODIDE [Concomitant]
     Indication: PRODUCT USED FOR UNKNOWN INDICATION
  3. CLEXANE [Concomitant]
     Active Substance: ENOXAPARIN SODIUM
     Indication: PRODUCT USED FOR UNKNOWN INDICATION
     Dates: start: 20160330
  4. PANTOZOL [Concomitant]
     Active Substance: PANTOPRAZOLE SODIUM
     Indication: PRODUCT USED FOR UNKNOWN INDICATION
  5. HUMIRA [Suspect]
     Active Substance: ADALIMUMAB
     Indication: PSORIATIC ARTHROPATHY
     Route: 058
     Dates: start: 20110715, end: 20160214

REACTIONS (13)
  - Gastrointestinal tract adenoma [Recovered/Resolved]
  - Renal cyst [Unknown]
  - Lumbar spinal stenosis [Unknown]
  - Rectal stenosis [Not Recovered/Not Resolved]
  - Appendicitis [Unknown]
  - Angiomyolipoma [Unknown]
  - Gastrointestinal disorder [Recovered/Resolved]
  - Dysuria [Unknown]
  - Pancreatic cyst [Unknown]
  - Osteochondrosis [Unknown]
  - Gastrointestinal motility disorder [Unknown]
  - Focal nodular hyperplasia [Unknown]
  - Spinal osteoarthritis [Unknown]

NARRATIVE: CASE EVENT DATE: 20160217
